FAERS Safety Report 23600346 (Version 1)
Quarter: 2024Q1

REPORT INFORMATION
  Report Type: Spontaneous
  Country: US (occurrence: US)
  Receive Date: 20240306
  Receipt Date: 20240306
  Transmission Date: 20240410
  Serious: Yes (Other)
  Sender: FDA-Public Use
  Company Number: None

PATIENT
  Age: 63 Year
  Sex: Male

DRUGS (7)
  1. SPIRONOLACTONE [Interacting]
     Active Substance: SPIRONOLACTONE
     Indication: Product used for unknown indication
     Dosage: 25 MG, ONCE PER DAY
  2. SACUBITRIL\VALSARTAN [Interacting]
     Active Substance: SACUBITRIL\VALSARTAN
     Indication: Product used for unknown indication
     Dosage: TWICE DAILY, 49/51 MG, 1 DF
  3. TIRZEPATIDE [Interacting]
     Active Substance: TIRZEPATIDE
     Indication: Weight decreased
     Dosage: 12.5 MG, PER WEEK
  4. TIRZEPATIDE [Interacting]
     Active Substance: TIRZEPATIDE
     Dosage: 12.5 MG, PER WEEK
  5. TIRZEPATIDE [Interacting]
     Active Substance: TIRZEPATIDE
     Dosage: 2.5 MG, PER WEEK
  6. CARVEDILOL [Interacting]
     Active Substance: CARVEDILOL
     Indication: Product used for unknown indication
     Dosage: 25 MG, 2 TIMES PER DAY
  7. CARVEDILOL [Interacting]
     Active Substance: CARVEDILOL
     Dosage: 50 MG, 2 TIMES PER DAY

REACTIONS (5)
  - Orthostatic hypotension [Recovering/Resolving]
  - Drug interaction [Recovered/Resolved]
  - Heart rate increased [Recovered/Resolved]
  - Blood creatinine increased [Recovering/Resolving]
  - Presyncope [Unknown]
